FAERS Safety Report 8115315-3 (Version None)
Quarter: 2012Q1

REPORT INFORMATION
  Report Type: 
  Country: None (occurrence: None)
  Receive Date: 20120206
  Receipt Date: 20120124
  Transmission Date: 20120608
  Serious: Yes (Other)
  Sender: FDA-Public Use
  Company Number: US-RB-034324-12

PATIENT
  Sex: Male
  Weight: 29 kg

DRUGS (2)
  1. DELSYM [Suspect]
     Indication: COUGH
     Dosage: ONE TSP , SINGLE DOSE.
     Route: 048
     Dates: start: 20120110, end: 20120110
  2. METHYLPHENIDATE HCL [Suspect]
     Indication: ATTENTION DEFICIT/HYPERACTIVITY DISORDER
     Dosage: 1 TABLET IN AM , ORAL
     Route: 048
     Dates: start: 20120110, end: 20120112

REACTIONS (9)
  - HEART RATE INCREASED [None]
  - MYDRIASIS [None]
  - DYSARTHRIA [None]
  - COUGH [None]
  - BLOOD PRESSURE INCREASED [None]
  - ANXIETY [None]
  - PARANOIA [None]
  - DELUSIONAL DISORDER, UNSPECIFIED TYPE [None]
  - DIZZINESS [None]
